FAERS Safety Report 8780502 (Version 1)
Quarter: 2012Q4

REPORT INFORMATION
  Report Type: Spontaneous
  Country: US (occurrence: None)
  Receive Date: 20120828
  Receipt Date: 20120828
  Transmission Date: 20130627
  Serious: No
  Sender: FDA-Public Use
  Company Number: 2012-00133

PATIENT
  Age: 49 Year
  Sex: Male

DRUGS (1)
  1. ZICAM [Suspect]
     Indication: COLD SYMPTOMS
     Dosage: 2 RapidMelts orally
     Route: 048
     Dates: start: 20120702

REACTIONS (4)
  - Ageusia [None]
  - Anosmia [None]
  - Tongue discolouration [None]
  - Wrong technique in drug usage process [None]
